FAERS Safety Report 10409685 (Version 10)
Quarter: 2016Q2

REPORT INFORMATION
  Report Type: Report from Study
  Country: BR (occurrence: BR)
  Receive Date: 20140826
  Receipt Date: 20160627
  Transmission Date: 20160815
  Serious: Yes (Other)
  Sender: FDA-Public Use
  Company Number: PHHY2014BR105839

PATIENT
  Age: 71 Year
  Sex: Female
  Weight: 92 kg

DRUGS (15)
  1. CABERGOLINE. [Concomitant]
     Active Substance: CABERGOLINE
     Indication: ACROMEGALY
     Dosage: 2 DF, TIW (2 TABLETS ON MON, WED AND FRI)
     Route: 065
     Dates: start: 2002, end: 2002
  2. CABERGOLINE. [Concomitant]
     Active Substance: CABERGOLINE
     Dosage: 2 DF, TIW (2 TABLETS ON MON, WED AND FRI)
     Route: 065
     Dates: start: 201602
  3. SELOZOK [Concomitant]
     Active Substance: METOPROLOL SUCCINATE
     Indication: CARDIAC DISORDER
     Dosage: 1 DF, DAILY
     Route: 048
     Dates: start: 2012
  4. DIOSMIN [Concomitant]
     Active Substance: DIOSMIN
     Indication: PERIPHERAL VASCULAR DISORDER
     Dosage: 1 DF, Q12H
     Route: 048
     Dates: start: 2005
  5. AAS [Concomitant]
     Active Substance: ASPIRIN
     Indication: PRODUCT USED FOR UNKNOWN INDICATION
     Dosage: 1 DF, QD
     Route: 048
     Dates: start: 2003
  6. SIMVASTATIN. [Concomitant]
     Active Substance: SIMVASTATIN
     Indication: BLOOD CHOLESTEROL INCREASED
     Dosage: 1 DF, QD
     Route: 065
     Dates: start: 201402
  7. METFORMIN HYDROCHLORIDE. [Concomitant]
     Active Substance: METFORMIN HYDROCHLORIDE
     Dosage: 1 DF, TID (IN THE MORNING, IN THE AFTERNOON AND AT NIGHT)
     Route: 048
     Dates: start: 2010
  8. INSULIN HUMAN [Concomitant]
     Active Substance: INSULIN HUMAN
     Indication: DIABETES MELLITUS
     Dosage: 10 IU, UNK
     Route: 030
     Dates: start: 1998
  9. ENALAPRIL [Concomitant]
     Active Substance: ENALAPRIL
     Indication: RENAL DISORDER
     Dosage: 1 DF, QD
     Route: 065
     Dates: start: 2008
  10. METFORMIN HYDROCHLORIDE. [Concomitant]
     Active Substance: METFORMIN HYDROCHLORIDE
     Indication: DIABETES MELLITUS
     Dosage: 1 DF, QD
     Route: 048
     Dates: start: 2003
  11. FUROSEMIDE. [Concomitant]
     Active Substance: FUROSEMIDE
     Indication: RENAL DISORDER
     Dosage: 1 DF, QD
     Route: 048
     Dates: start: 2008
  12. SANDOSTATIN LAR DEPOT [Suspect]
     Active Substance: OCTREOTIDE ACETATE
     Indication: ACROMEGALY
     Dosage: 30 MG, QMO (EVERY 28 DAYS OR 30 DAYS)
     Route: 030
     Dates: start: 2003
  13. INSULIN HUMAN [Concomitant]
     Active Substance: INSULIN HUMAN
     Dosage: 70 IU, QD
     Route: 030
  14. INSULIN HUMAN [Concomitant]
     Active Substance: INSULIN HUMAN
     Dosage: 85 IU QD, (50 UNITS IN THE MORNING, 30 UNITS IN THE AFTERNOON AND 5 UNITS AT NIGHT)
     Route: 030
  15. METFORMIN HYDROCHLORIDE. [Concomitant]
     Active Substance: METFORMIN HYDROCHLORIDE
     Dosage: 2 DF, QD
     Route: 048

REACTIONS (21)
  - Joint injury [Recovered/Resolved]
  - Eating disorder [Unknown]
  - Arthralgia [Recovered/Resolved]
  - Hypertension [Recovering/Resolving]
  - Hypoglycaemia [Recovering/Resolving]
  - Diabetic retinopathy [Recovering/Resolving]
  - Fall [Unknown]
  - Weight increased [Recovering/Resolving]
  - Insomnia [Recovering/Resolving]
  - Viral infection [Unknown]
  - Pneumonia [Unknown]
  - Weight decreased [Unknown]
  - Malaise [Unknown]
  - Cataract [Recovering/Resolving]
  - Oedema peripheral [Recovered/Resolved]
  - Poor quality sleep [Unknown]
  - Osteoarthritis [Recovered/Resolved]
  - Spinal pain [Recovering/Resolving]
  - Gait disturbance [Recovering/Resolving]
  - Injection site pain [Recovered/Resolved]
  - Urinary tract infection [Recovering/Resolving]

NARRATIVE: CASE EVENT DATE: 2006
